FAERS Safety Report 6634703-5 (Version None)
Quarter: 2010Q1

REPORT INFORMATION
  Report Type: 
  Country: None (occurrence: None)
  Receive Date: 20100315
  Receipt Date: 20100309
  Transmission Date: 20100710
  Serious: Yes (Congenital Anomaly, Other)
  Sender: FDA-Public Use
  Company Number: US-ASTRAZENECA-2010SE07204

PATIENT
  Age: 15010 Day
  Sex: Male
  Weight: 77.1 kg

DRUGS (11)
  1. SYMBICORT [Suspect]
     Dosage: 160/4.5, TWO PUFFS
     Route: 055
     Dates: start: 20100209
  2. CRESTOR [Concomitant]
     Route: 048
     Dates: start: 20100205
  3. PLAVIX [Concomitant]
     Route: 065
     Dates: start: 20100205
  4. COREG [Concomitant]
     Route: 065
     Dates: start: 20100205
  5. BENICAR [Concomitant]
     Route: 065
     Dates: start: 20050101
  6. CELEXA [Concomitant]
     Route: 065
     Dates: start: 20050101
  7. FISH OIL [Concomitant]
     Route: 065
     Dates: start: 20100205
  8. ASPIRIN [Concomitant]
     Route: 065
     Dates: start: 20100205
  9. VENTOLIN HFA [Concomitant]
     Route: 055
  10. ALVESCO [Concomitant]
  11. SPIRIVA [Concomitant]
     Dosage: EVERY THREE WEEKS

REACTIONS (1)
  - HYPERSENSITIVITY [None]
